FAERS Safety Report 19166956 (Version 1)
Quarter: 2021Q2

REPORT INFORMATION
  Report Type: Report from Study
  Country: None (occurrence: PR)
  Receive Date: 20210421
  Receipt Date: 20210421
  Transmission Date: 20210717
  Serious: Yes (Hospitalization, Other)
  Sender: FDA-Public Use
  Company Number: PR-ABBVIE-21K-131-3865896-00

PATIENT
  Age: 72 Year
  Sex: Male
  Weight: 77.18 kg

DRUGS (1)
  1. VENCLEXTA [Suspect]
     Active Substance: VENETOCLAX
     Indication: CHRONIC LYMPHOCYTIC LEUKAEMIA
     Route: 048

REACTIONS (8)
  - Dizziness [Unknown]
  - Coma [Unknown]
  - Headache [Unknown]
  - Fall [Recovered/Resolved]
  - Fall [Not Recovered/Not Resolved]
  - Hypotension [Not Recovered/Not Resolved]
  - Cerebral haemorrhage [Unknown]
  - Dysphagia [Unknown]

NARRATIVE: CASE EVENT DATE: 202104
